FAERS Safety Report 6734679-6 (Version None)
Quarter: 2010Q2

REPORT INFORMATION
  Report Type: 
  Country: None (occurrence: None)
  Receive Date: 20100519
  Receipt Date: 20100519
  Transmission Date: 20101027
  Serious: No
  Sender: FDA-Public Use
  Company Number: None

PATIENT
  Sex: Male
  Weight: 30.8 kg

DRUGS (4)
  1. CYCLOPHOSPHAMIDE [Suspect]
     Dosage: 1100 MG
     Dates: end: 20100505
  2. CYTARABINE [Suspect]
     Dosage: 332 MG
     Dates: end: 20100508
  3. MERCAPTOPURINE [Suspect]
     Dosage: 225 MG
     Dates: end: 20100507
  4. METHOTREXATE [Suspect]
     Dosage: 15 MG
     Dates: end: 20100505

REACTIONS (2)
  - BLOOD BILIRUBIN INCREASED [None]
  - PYREXIA [None]
